FAERS Safety Report 9030934 (Version 1)
Quarter: 2013Q1

REPORT INFORMATION
  Report Type: Spontaneous
  Country: GB (occurrence: GB)
  Receive Date: 20130123
  Receipt Date: 20130123
  Transmission Date: 20140127
  Serious: Yes (Death)
  Sender: FDA-Public Use
  Company Number: GB-ROCHE-1182204

PATIENT
  Age: 22 Year
  Sex: Male

DRUGS (1)
  1. ROACCUTANE [Suspect]
     Indication: ACNE CYSTIC
     Route: 065

REACTIONS (2)
  - Completed suicide [Fatal]
  - Acne [Unknown]
